FAERS Safety Report 17928581 (Version 1)
Quarter: 2020Q2

REPORT INFORMATION
  Report Type: Spontaneous
  Country: GB (occurrence: GB)
  Receive Date: 20200623
  Receipt Date: 20200623
  Transmission Date: 20200714
  Serious: Yes (Other)
  Sender: FDA-Public Use
  Company Number: GB-FERRINGPH-2020FE04028

PATIENT
  Age: 59 Year
  Sex: Male
  Weight: 85 kg

DRUGS (2)
  1. DEGARELIX [Suspect]
     Active Substance: DEGARELIX
     Indication: PROSTATE CANCER METASTATIC
     Dosage: 10TH INJECTION
     Route: 051
     Dates: start: 20200522, end: 20200522
  2. METFORMIN [Concomitant]
     Active Substance: METFORMIN HYDROCHLORIDE
     Route: 065

REACTIONS (6)
  - Peripheral coldness [Recovered/Resolved]
  - Injection site pain [Unknown]
  - Injection site warmth [Unknown]
  - Chills [Recovered/Resolved]
  - Pyrexia [Recovered/Resolved]
  - Constipation [Recovered/Resolved]

NARRATIVE: CASE EVENT DATE: 20200522
